FAERS Safety Report 6039290-0 (Version None)
Quarter: 2009Q1

REPORT INFORMATION
  Report Type: 
  Country: None (occurrence: None)
  Receive Date: 20090115
  Receipt Date: 20090112
  Transmission Date: 20090719
  Serious: No
  Sender: FDA-Public Use
  Company Number: US-B.I. PHARMACEUTICALS,INC./RIDGEFIELD-2009-BP-00369BP

PATIENT
  Sex: Female

DRUGS (2)
  1. SPIRIVA [Suspect]
  2. ADVAIR DISKUS 100/50 [Concomitant]

REACTIONS (1)
  - DEVICE INTERACTION [None]
